FAERS Safety Report 7685066-8 (Version None)
Quarter: 2011Q3

REPORT INFORMATION
  Report Type: 
  Country: None (occurrence: None)
  Receive Date: 20110811
  Receipt Date: 20110718
  Transmission Date: 20111222
  Serious: Yes (Hospitalization)
  Sender: FDA-Public Use
  Company Number: 2011PROUSA00497

PATIENT
  Age: 73 Year
  Sex: Male
  Weight: 67.5 kg

DRUGS (7)
  1. PROVENGE [Suspect]
     Dosage: 250 ML, SINGLE, INTRAVENOUS
     Route: 042
     Dates: start: 20110715, end: 20110715
  2. VERAPAMIL [Concomitant]
  3. LISINOPRIL [Concomitant]
  4. ALLOPURINOL [Concomitant]
  5. ELIGARD [Concomitant]
  6. PROVENGE [Suspect]
     Indication: PROSTATE CANCER METASTATIC
     Dosage: 250 ML, SINGLE, INTRAVENOUS
     Route: 042
     Dates: start: 20110624, end: 20110624
  7. ASPIRIN [Concomitant]

REACTIONS (9)
  - HEAD INJURY [None]
  - SYNCOPE [None]
  - PALPITATIONS [None]
  - BLOOD POTASSIUM DECREASED [None]
  - PULMONARY EMBOLISM [None]
  - LACERATION [None]
  - FATIGUE [None]
  - FALL [None]
  - HAEMATOMA [None]
